FAERS Safety Report 6845897-0 (Version None)
Quarter: 2010Q3

REPORT INFORMATION
  Report Type: 
  Country: None (occurrence: None)
  Receive Date: 20100712
  Receipt Date: 20100409
  Transmission Date: 20110219
  Serious: Yes (Death, Hospitalization)
  Sender: FDA-Public Use
  Company Number: OTH-PAT-2010001

PATIENT
  Age: 27 Year

DRUGS (14)
  1. CYSTADANE [Suspect]
     Indication: HOMOCYSTINURIA
     Dosage: 16 G EVERY DAY ORAL
     Route: 048
     Dates: start: 20071210, end: 20100408
  2. ALBUTEROL [Concomitant]
  3. IPRATROPIUM BROMURE (ATROVENT) [Concomitant]
  4. BENZATROPINE [Concomitant]
  5. CYANOCOBALAMIN [Concomitant]
  6. SODIUM VALPROATE (DEPAKOTE) [Concomitant]
  7. ZINC OXIDE (DESITIN) [Concomitant]
  8. FERROUS SULFATE TAB [Concomitant]
  9. PROTEINS (FIBERSOURCE HN) [Concomitant]
  10. HYDROCODONE / HOMATROPIN (HYDROMET) [Concomitant]
  11. LEVOCARNITINE [Concomitant]
  12. RISPERDAL [Concomitant]
  13. ACETAMINOPHEN [Concomitant]
  14. PREDNISONE [Concomitant]

REACTIONS (1)
  - PNEUMONIA [None]
